FAERS Safety Report 6780160-8 (Version None)
Quarter: 2010Q2

REPORT INFORMATION
  Report Type: 
  Country: None (occurrence: None)
  Receive Date: 20100618
  Receipt Date: 20100610
  Transmission Date: 20101027
  Serious: Yes (Hospitalization)
  Sender: FDA-Public Use
  Company Number: PHHO2010US06799

PATIENT
  Sex: Female
  Weight: 91.6 kg

DRUGS (11)
  1. AFINITOR [Suspect]
     Indication: NEOPLASM
     Dosage: 10 MG, QD
     Route: 048
     Dates: start: 20100413
  2. LBH589 LBH+CAP [Suspect]
     Indication: NEOPLASM
     Dosage: 10 MG
     Route: 048
     Dates: start: 20100413
  3. AVASTIN [Suspect]
     Indication: NEOPLASM
     Dosage: 10 MG/KG
     Route: 042
     Dates: start: 20100413
  4. DIOVAN HCT [Concomitant]
  5. PROTONIX [Concomitant]
  6. MEGACE [Concomitant]
  7. MIRALAX [Concomitant]
  8. MS CONTIN [Concomitant]
  9. ATIVAN [Concomitant]
  10. VALSARTAN/HYDROCHLOORTHIAZIDE [Concomitant]
  11. KYTRIL [Concomitant]

REACTIONS (13)
  - ABDOMINAL PAIN [None]
  - ABDOMINAL PAIN UPPER [None]
  - CHEST DISCOMFORT [None]
  - CHEST PAIN [None]
  - CONSTIPATION [None]
  - GASTROINTESTINAL ULCER [None]
  - HYPONATRAEMIA [None]
  - HYPOVOLAEMIA [None]
  - NAUSEA [None]
  - OESOPHAGITIS [None]
  - TACHYCARDIA [None]
  - URINARY TRACT INFECTION [None]
  - VOMITING [None]
